FAERS Safety Report 8758009 (Version 2)
Quarter: 2012Q4

REPORT INFORMATION
  Report Type: 
  Country: FR (occurrence: FR)
  Receive Date: 20120828
  Receipt Date: 20120907
  Transmission Date: 20130627
  Serious: Yes (Hospitalization)
  Sender: FDA-Public Use
  Company Number: FR-PFIZER INC-2012205406

PATIENT
  Age: 77 Year
  Sex: Male

DRUGS (12)
  1. FLUOROURACILE PFIZER [Suspect]
     Indication: COLON CANCER
     Dosage: 2208 mg, cyclic
     Route: 042
     Dates: start: 20120502, end: 20120503
  2. TEGRETOL [Suspect]
     Indication: EPILEPSY
     Dosage: 1 DF, 1x/day
     Route: 048
     Dates: start: 1983
  3. OXALIPLATIN [Suspect]
     Indication: COLON CANCER
     Dosage: 156 mg, single
     Route: 042
     Dates: start: 20120502, end: 20120502
  4. ONDANSETRON [Suspect]
     Indication: PROPHYLAXIS OF NAUSEA AND VOMITING
     Dosage: 8 mg, single
     Route: 042
     Dates: start: 20120502, end: 20120502
  5. RAMIPRIL [Concomitant]
     Dosage: 5 mg, 1x/day
  6. LODOZ [Concomitant]
     Dosage: 1 DF (10/6.25), 1x/day
  7. FRACTAL [Concomitant]
     Dosage: 80 mg, 1x/day
  8. FRAXODI [Concomitant]
     Dosage: 0.7 UNK, 1x/day
  9. SOLU-MEDROL [Concomitant]
     Dosage: 80 mg, UNK
     Route: 042
  10. MAGNESIUM SULFATE [Concomitant]
     Dosage: 1.5 g, 2x/day on day 1
  11. CALCIUM GLUCONATE [Concomitant]
     Dosage: 1 g, 2x/day on day 1
  12. CALCIUM FOLINATE [Concomitant]
     Dosage: 368 mg, on day 1 and day 2

REACTIONS (2)
  - Malaise [Recovered/Resolved]
  - Urinary incontinence [Recovered/Resolved]
